FAERS Safety Report 5008467-5 (Version None)
Quarter: 2006Q2

REPORT INFORMATION
  Report Type: 
  Country: None (occurrence: None)
  Receive Date: 20060522
  Receipt Date: 20060522
  Transmission Date: 20061013
  Serious: Yes (Other)
  Sender: FDA-Public Use
  Company Number: None

PATIENT
  Sex: Male
  Weight: 154.6766 kg

DRUGS (1)
  1. GLIMEPIRIDE [Suspect]
     Indication: DIABETES MELLITUS NON-INSULIN-DEPENDENT
     Dosage: 2MG  BID  PO
     Route: 048

REACTIONS (4)
  - BLOOD GLUCOSE INCREASED [None]
  - INSOMNIA [None]
  - MOOD SWINGS [None]
  - NAUSEA [None]
